FAERS Safety Report 9037051 (Version 1)
Quarter: 2013Q1

REPORT INFORMATION
  Report Type: Report from Study
  Country: US (occurrence: US)
  Receive Date: 20130129
  Receipt Date: 20130129
  Transmission Date: 20140127
  Serious: No
  Sender: FDA-Public Use
  Company Number: US-ABBOTT-12P-163-0893910-00

PATIENT
  Age: 41 Year
  Sex: Female

DRUGS (5)
  1. HUMIRA 40 MG/0.8 ML PEN [Suspect]
     Indication: CROHN^S DISEASE
     Dates: start: 20111129
  2. ASACOL [Concomitant]
     Indication: CROHN^S DISEASE
     Route: 048
  3. LEVOTHYROXINE [Concomitant]
     Indication: HYPOTHYROIDISM
     Route: 048
  4. ATENOLOL [Concomitant]
     Indication: HYPERTENSION
     Route: 048
  5. FLEXERIL [Concomitant]
     Indication: INSOMNIA
     Route: 048

REACTIONS (5)
  - Constipation [Not Recovered/Not Resolved]
  - Cyst [Unknown]
  - Activities of daily living impaired [Unknown]
  - Proctalgia [Unknown]
  - Frequent bowel movements [Unknown]
